FAERS Safety Report 21005004 (Version 2)
Quarter: 2022Q4

REPORT INFORMATION
  Report Type: Report from Study
  Country: CA (occurrence: CA)
  Receive Date: 20220624
  Receipt Date: 20221017
  Transmission Date: 20230112
  Serious: Yes (Other)
  Sender: FDA-Public Use
  Company Number: CA-NOVARTISPH-NVSC2022CA144764

PATIENT
  Age: 34 Year
  Sex: Male

DRUGS (1)
  1. KESIMPTA [Suspect]
     Active Substance: OFATUMUMAB
     Indication: Relapsing-remitting multiple sclerosis
     Dosage: UNK, QMO
     Route: 058
     Dates: start: 20220615

REACTIONS (9)
  - Multiple sclerosis relapse [Recovering/Resolving]
  - Hemihypoaesthesia [Not Recovered/Not Resolved]
  - Burning sensation [Recovering/Resolving]
  - Loss of consciousness [Unknown]
  - Memory impairment [Unknown]
  - Fall [Unknown]
  - Poor quality sleep [Unknown]
  - Chills [Unknown]
  - Pyrexia [Unknown]

NARRATIVE: CASE EVENT DATE: 20220615
